FAERS Safety Report 9429068 (Version 1)
Quarter: 2013Q3

REPORT INFORMATION
  Report Type: Report from Study
  Country: US (occurrence: US)
  Receive Date: 20130730
  Receipt Date: 20130730
  Transmission Date: 20140515
  Serious: No
  Sender: FDA-Public Use
  Company Number: US-ABBOTT-13P-163-1041901-00

PATIENT
  Sex: Female
  Weight: 71.73 kg

DRUGS (5)
  1. NIASPAN (COATED) [Suspect]
     Indication: HIGH DENSITY LIPOPROTEIN DECREASED
  2. NIASPAN (COATED) [Suspect]
     Indication: BLOOD CHOLESTEROL INCREASED
  3. ESTRADIOL [Concomitant]
     Indication: PRODUCT USED FOR UNKNOWN INDICATION
  4. HCTZ [Concomitant]
     Indication: PRODUCT USED FOR UNKNOWN INDICATION
  5. VITAMINS [Concomitant]
     Indication: PRODUCT USED FOR UNKNOWN INDICATION

REACTIONS (6)
  - Abdominal distension [Not Recovered/Not Resolved]
  - Decreased appetite [Not Recovered/Not Resolved]
  - Feeling abnormal [Not Recovered/Not Resolved]
  - Flushing [Not Recovered/Not Resolved]
  - Flatulence [Unknown]
  - Food aversion [Not Recovered/Not Resolved]
